FAERS Safety Report 10037489 (Version 1)
Quarter: 2014Q1

REPORT INFORMATION
  Report Type: Spontaneous
  Country: US (occurrence: None)
  Receive Date: 20140325
  Receipt Date: 20140325
  Transmission Date: 20141002
  Serious: Yes (Other)
  Sender: FDA-Public Use
  Company Number: None

PATIENT
  Age: 55 Year
  Sex: Female
  Weight: 68.04 kg

DRUGS (8)
  1. CIPRO [Suspect]
     Indication: URINARY TRACT INFECTION
     Dosage: 1 TAB
     Route: 048
     Dates: start: 20140202, end: 20140209
  2. CYMBALTA [Concomitant]
  3. LEVOTHYROXINE [Concomitant]
  4. MULTI VITS [Concomitant]
  5. VIT D, E [Concomitant]
  6. FISH OIL [Concomitant]
  7. COIODRIL  SILVER [Concomitant]
  8. COENZIME Q10 [Concomitant]

REACTIONS (1)
  - Insomnia [None]
